FAERS Safety Report 9647394 (Version 1)
Quarter: 2013Q4

REPORT INFORMATION
  Report Type: Report from Study
  Country: JP (occurrence: JP)
  Receive Date: 20131028
  Receipt Date: 20131028
  Transmission Date: 20140711
  Serious: Yes (Other)
  Sender: FDA-Public Use
  Company Number: JP-PFIZER INC-2013303584

PATIENT
  Age: 69 Year
  Sex: Male

DRUGS (3)
  1. CARBOPLATIN [Suspect]
     Indication: URETERIC CANCER METASTATIC
     Dosage: AUC 5 FOR FIRST-LINE AND AUC 4 FOR SECOND-LINE, ON DAY 2
  2. GEMCITABINE HYDROCHLORIDE [Suspect]
     Indication: URETERIC CANCER METASTATIC
     Dosage: 800 MG/M2, CYCLIC (DAYS 1, 8, AND 15)
  3. DEXAMETHASONE [Concomitant]
     Indication: PREMEDICATION
     Dosage: UNK

REACTIONS (1)
  - Pneumonitis [Unknown]
